FAERS Safety Report 5821853-6 (Version None)
Quarter: 2008Q3

REPORT INFORMATION
  Report Type: 
  Country: None (occurrence: None)
  Receive Date: 20080724
  Receipt Date: 20080717
  Transmission Date: 20090109
  Serious: Yes (Hospitalization)
  Sender: FDA-Public Use
  Company Number: US-ROCHE-227243

PATIENT
  Sex: Female
  Weight: 49.9 kg

DRUGS (3)
  1. TAMIFLU [Suspect]
     Indication: INFLUENZA
     Dosage: THE PATIENT TOOK FOUR DOSES OF OSELTAMIVIR.
     Route: 048
     Dates: start: 19991228, end: 19991230
  2. AMOXICILLIN [Concomitant]
     Indication: INFLUENZA
     Route: 048
     Dates: start: 19991228, end: 19991230
  3. BCP [Concomitant]

REACTIONS (5)
  - ANXIETY [None]
  - DYSKINESIA [None]
  - DYSTONIA [None]
  - MUSCLE CONTRACTIONS INVOLUNTARY [None]
  - VISUAL IMPAIRMENT [None]
